FAERS Safety Report 4968932-3 (Version None)
Quarter: 2006Q2

REPORT INFORMATION
  Report Type: 
  Country: None (occurrence: None)
  Receive Date: 20060411
  Receipt Date: 20050414
  Transmission Date: 20061013
  Serious: Yes (Hospitalization, Disabling, Other)
  Sender: FDA-Public Use
  Company Number: US-MERCK-0504USA02818

PATIENT
  Age: 55 Year
  Sex: Female
  Weight: 68 kg

DRUGS (13)
  1. VICODIN [Concomitant]
     Route: 065
  2. CARDIZEM [Concomitant]
     Route: 065
  3. COZAAR [Concomitant]
     Route: 065
  4. PLAVIX [Concomitant]
     Route: 065
  5. PAXIL [Concomitant]
     Indication: ANXIETY
     Route: 065
  6. PAXIL [Concomitant]
     Indication: DEPRESSION
     Route: 065
  7. VIOXX [Suspect]
     Indication: ARTHRALGIA
     Route: 048
     Dates: start: 20010101, end: 20040901
  8. VIOXX [Suspect]
     Indication: ARTHRITIS
     Route: 048
     Dates: start: 20010101, end: 20040901
  9. ECOTRIN [Concomitant]
     Route: 048
  10. LIPITOR [Concomitant]
     Route: 048
  11. DIOVAN [Concomitant]
     Route: 048
  12. TIAZAC [Concomitant]
     Route: 048
  13. ADVAIR DISKUS 100/50 [Concomitant]
     Route: 055

REACTIONS (13)
  - ANGINA PECTORIS [None]
  - BLOOD TESTOSTERONE INCREASED [None]
  - CORONARY ARTERY STENOSIS [None]
  - DYSPNOEA [None]
  - ENLARGED CLITORIS [None]
  - HIRSUTISM [None]
  - ISCHAEMIC CARDIOMYOPATHY [None]
  - MYOCARDIAL INFARCTION [None]
  - OVARIAN DISORDER [None]
  - THYROID NEOPLASM [None]
  - UTERINE DISORDER [None]
  - VIRILISM [None]
  - VOCAL CORD THICKENING [None]
